FAERS Safety Report 24317603 (Version 1)
Quarter: 2024Q3

REPORT INFORMATION
  Report Type: Spontaneous
  Country: FR (occurrence: FR)
  Receive Date: 20240913
  Receipt Date: 20240913
  Transmission Date: 20241016
  Serious: Yes (Hospitalization, Other)
  Sender: HIKMA
  Company Number: None

PATIENT
  Age: 69 Year
  Sex: Male
  Weight: 49.4 kg

DRUGS (4)
  1. CARBOPLATIN [Suspect]
     Active Substance: CARBOPLATIN
     Indication: Adenocarcinoma
     Dosage: 1 DOSAGE FORM
     Route: 042
     Dates: start: 20240717, end: 20240717
  2. INNOHEP [Suspect]
     Active Substance: TINZAPARIN SODIUM
     Indication: Neoplasm malignant
     Dosage: 1 DOSAGE FORM, QD
     Route: 058
     Dates: start: 20240704, end: 20240722
  3. PEMBROLIZUMAB [Suspect]
     Active Substance: PEMBROLIZUMAB
     Indication: Adenocarcinoma
     Dosage: 1 DOSAGE FORM
     Route: 042
     Dates: start: 20240717, end: 20240717
  4. PEMETREXED [Suspect]
     Active Substance: PEMETREXED
     Indication: Adenocarcinoma
     Dosage: 1 DOSAGE FORM
     Route: 042
     Dates: start: 20240717, end: 20240717

REACTIONS (2)
  - Drug ineffective [Not Recovered/Not Resolved]
  - Deep vein thrombosis [Recovering/Resolving]

NARRATIVE: CASE EVENT DATE: 20240722
